FAERS Safety Report 9388727 (Version 3)
Quarter: 2013Q3

REPORT INFORMATION
  Report Type: Report from Study
  Country: US (occurrence: US)
  Receive Date: 20130708
  Receipt Date: 20130829
  Transmission Date: 20140515
  Serious: Yes (Hospitalization)
  Sender: FDA-Public Use
  Company Number: US-ACTELION-A-US2012-73929

PATIENT
  Age: 56 Year
  Sex: Female

DRUGS (6)
  1. VELETRI [Suspect]
     Indication: PULMONARY ARTERIAL HYPERTENSION
     Dosage: 15 NG/KG, UNK
     Route: 042
     Dates: start: 20120911
  2. VELETRI [Suspect]
     Dosage: 10 NG/KG, PER MIN
     Route: 042
     Dates: start: 201208
  3. TRACLEER [Suspect]
     Indication: PULMONARY ARTERIAL HYPERTENSION
     Dosage: UNK
     Route: 048
     Dates: start: 201108
  4. SILDENAFIL [Concomitant]
  5. COUMADIN [Concomitant]
  6. LASIX [Concomitant]

REACTIONS (10)
  - Pleural effusion [Recovering/Resolving]
  - Respiratory tract infection [Recovering/Resolving]
  - Catheter site pruritus [Recovering/Resolving]
  - Oedema [Unknown]
  - Weight increased [Unknown]
  - Joint swelling [Unknown]
  - Dyspnoea [Recovering/Resolving]
  - Rash [Unknown]
  - Pruritus [Unknown]
  - Catheter site erythema [Unknown]
